FAERS Safety Report 4456221-5 (Version None)
Quarter: 2004Q3

REPORT INFORMATION
  Report Type: 
  Country: None (occurrence: None)
  Receive Date: 20040902
  Receipt Date: 20040712
  Transmission Date: 20050211
  Serious: No
  Sender: FDA-Public Use
  Company Number: 200412094BWH

PATIENT
  Sex: Male

DRUGS (8)
  1. LEVITRA [Suspect]
     Indication: ERECTILE DYSFUNCTION
     Dosage: 20 MG, TOTAL DAILY, ORAL
     Route: 048
     Dates: start: 20040101
  2. LITHIUM CARBONATE [Concomitant]
  3. LIPITOR [Concomitant]
  4. TOPROL-XL [Concomitant]
  5. BEXTRA [Concomitant]
  6. FISH OIL [Concomitant]
  7. RESTORIL [Concomitant]
  8. VIAGRA [Concomitant]

REACTIONS (2)
  - ANXIETY [None]
  - NERVOUSNESS [None]
